FAERS Safety Report 9643227 (Version 2)
Quarter: 2013Q4

REPORT INFORMATION
  Report Type: Report from Study
  Country: ES (occurrence: ES)
  Receive Date: 20131024
  Receipt Date: 20131024
  Transmission Date: 20140711
  Serious: Yes (Hospitalization)
  Sender: FDA-Public Use
  Company Number: ES-ABBVIE-13P-144-1081048-00

PATIENT
  Age: 56 Year
  Sex: Male
  Weight: 68 kg

DRUGS (7)
  1. HUMIRA [Suspect]
     Indication: PSORIASIS
     Route: 058
     Dates: start: 20100513
  2. METHOTREXATE [Suspect]
     Indication: PRODUCT USED FOR UNKNOWN INDICATION
     Dates: start: 20120519
  3. ZYLORIC [Suspect]
     Indication: PRODUCT USED FOR UNKNOWN INDICATION
  4. SINTROM [Concomitant]
     Indication: ATRIAL FIBRILLATION
  5. DIGOXINA [Concomitant]
     Indication: ATRIAL FIBRILLATION
  6. CARVEDILOL [Concomitant]
     Indication: ATRIAL FIBRILLATION
  7. FOLIC ACID [Concomitant]
     Indication: PRODUCT USED FOR UNKNOWN INDICATION

REACTIONS (7)
  - Myelodysplastic syndrome [Not Recovered/Not Resolved]
  - Asthenia [Unknown]
  - Dyspnoea exertional [Unknown]
  - Nasopharyngitis [Unknown]
  - Anaemia [Unknown]
  - Pancytopenia [Unknown]
  - Anaemia [Unknown]
